FAERS Safety Report 9541463 (Version 1)
Quarter: 2013Q3

REPORT INFORMATION
  Report Type: Report from Study
  Country: DE (occurrence: DE)
  Receive Date: 20130923
  Receipt Date: 20130923
  Transmission Date: 20140515
  Serious: Yes (Life-Threatening)
  Sender: FDA-Public Use
  Company Number: DE-BRISTOL-MYERS SQUIBB COMPANY-19406008

PATIENT
  Age: 67 Year
  Sex: Male

DRUGS (1)
  1. ERBITUX [Suspect]
     Indication: SQUAMOUS CELL CARCINOMA OF HEAD AND NECK
     Route: 042

REACTIONS (1)
  - Drug therapeutic incompatibility [Not Recovered/Not Resolved]
